FAERS Safety Report 4279708-7 (Version None)
Quarter: 2004Q1

REPORT INFORMATION
  Report Type: 
  Country: None (occurrence: None)
  Receive Date: 20040123
  Receipt Date: 20040107
  Transmission Date: 20041129
  Serious: Yes (Hospitalization)
  Sender: FDA-Public Use
  Company Number: DEWYE499408JAN04

PATIENT
  Age: 52 Year
  Sex: Male

DRUGS (16)
  1. LORAZEPAM [Suspect]
     Dosage: SEE IMAGE
     Route: 048
     Dates: start: 20030821, end: 20030910
  2. LORAZEPAM [Suspect]
     Dosage: SEE IMAGE
     Route: 048
     Dates: start: 20030911, end: 20030915
  3. LORAZEPAM [Suspect]
     Dosage: SEE IMAGE
     Route: 048
     Dates: start: 20030916, end: 20030928
  4. METOPROLOL SUCCINATE [Suspect]
     Dosage: SEE IMAGE
     Route: 048
     Dates: start: 20030913, end: 20030918
  5. METOPROLOL SUCCINATE [Suspect]
     Dosage: SEE IMAGE
     Route: 048
     Dates: start: 20030919
  6. REMERGIL (MIRTAZAPINE) [Suspect]
     Dosage: SEE IMAGE
     Route: 048
     Dates: start: 20030821, end: 20030903
  7. REMERGIL (MIRTAZAPINE) [Suspect]
     Dosage: SEE IMAGE
     Route: 048
     Dates: start: 20000904
  8. RISPERDAL [Suspect]
     Dosage: 2 MG 1 X PER 1 DAY
     Route: 048
     Dates: start: 20030821
  9. VENLAFAXINE HCL [Suspect]
     Dosage: SEE IMAGE
     Route: 048
     Dates: start: 20030922, end: 20030922
  10. VENLAFAXINE HCL [Suspect]
     Dosage: SEE IMAGE
     Route: 048
     Dates: start: 20030924, end: 20030929
  11. VENLAFAXINE HCL [Suspect]
     Dosage: SEE IMAGE
     Route: 048
     Dates: start: 20030930, end: 20031006
  12. VENLAFAXINE HCL [Suspect]
     Dosage: SEE IMAGE
     Route: 048
     Dates: start: 20031007, end: 20031008
  13. VENLAFAXINE HCL [Suspect]
     Dosage: SEE IMAGE
     Route: 048
     Dates: start: 20031009, end: 20031014
  14. VENLAFAXINE HCL [Suspect]
     Dosage: SEE IMAGE
     Route: 048
     Dates: start: 20031015, end: 20031026
  15. QUILONUM - SLOW RELEASE (LITHIUM CARBONATE) [Concomitant]
  16. CHLORALDURAT (CHLORAL HYDRATE) [Concomitant]

REACTIONS (2)
  - DRUG INTERACTION [None]
  - HEPATIC ENZYME INCREASED [None]
